FAERS Safety Report 13990376 (Version 1)
Quarter: 2017Q3

REPORT INFORMATION
  Report Type: Spontaneous
  Country: US (occurrence: US)
  Receive Date: 20170920
  Receipt Date: 20170920
  Transmission Date: 20171128
  Serious: Yes (Death, Other)
  Sender: FDA-Public Use
  Company Number: US-ROCHE-1993793

PATIENT

DRUGS (1)
  1. RITUXAN [Suspect]
     Active Substance: RITUXIMAB
     Indication: IMMUNE THROMBOCYTOPENIC PURPURA
     Dosage: NO
     Route: 065
     Dates: start: 20170906

REACTIONS (5)
  - Bone marrow failure [Unknown]
  - Neutrophil count decreased [Unknown]
  - Death [Fatal]
  - Platelet count decreased [Unknown]
  - Aplastic anaemia [Unknown]
